FAERS Safety Report 7903045-X (Version None)
Quarter: 2011Q4

REPORT INFORMATION
  Report Type: 
  Country: None (occurrence: None)
  Receive Date: 20111104
  Receipt Date: 20111024
  Transmission Date: 20120403
  Serious: Yes (Hospitalization)
  Sender: FDA-Public Use
  Company Number: B0760143A

PATIENT
  Age: 89 Year
  Sex: Male

DRUGS (9)
  1. METOPROLOL TARTRATE [Concomitant]
  2. FLUOXETINE HCL [Concomitant]
  3. SIMVASTATIN [Concomitant]
  4. OMEPRAZOLE [Concomitant]
  5. LEVOTHYROXINE SODIUM [Concomitant]
  6. VALACYCLOVIR HYDROCHLORIDE [Suspect]
     Indication: HERPES ZOSTER
     Dosage: 1 GRAM (S) / ORAL
     Route: 048
  7. LISINOPRIL [Concomitant]
  8. SODIUM BICARBONATE [Concomitant]
  9. DONEPEZIL HCL [Concomitant]

REACTIONS (21)
  - BLOOD UREA INCREASED [None]
  - RHONCHI [None]
  - DISORIENTATION [None]
  - BLISTER [None]
  - AGITATION [None]
  - RASH ERYTHEMATOUS [None]
  - SCAB [None]
  - BLOOD POTASSIUM INCREASED [None]
  - EYE DISCHARGE [None]
  - BLOOD CREATININE INCREASED [None]
  - CEREBRAL SMALL VESSEL ISCHAEMIC DISEASE [None]
  - HALLUCINATION, VISUAL [None]
  - MENTAL STATUS CHANGES [None]
  - EYE SWELLING [None]
  - BLOOD SODIUM DECREASED [None]
  - RENAL IMPAIRMENT [None]
  - NEUROTOXICITY [None]
  - BLOOD PRESSURE INCREASED [None]
  - SKIN EXFOLIATION [None]
  - VISION BLURRED [None]
  - PERIORBITAL OEDEMA [None]
